FAERS Safety Report 9692772 (Version 1)
Quarter: 2013Q4

REPORT INFORMATION
  Report Type: Report from Study
  Country: JP (occurrence: JP)
  Receive Date: 20131118
  Receipt Date: 20131118
  Transmission Date: 20140711
  Serious: Yes (Other)
  Sender: FDA-Public Use
  Company Number: JP-JNJFOC-20131108180

PATIENT
  Age: 81 Year
  Sex: Male

DRUGS (8)
  1. FINIBAX [Suspect]
     Indication: PNEUMONIA
     Route: 041
     Dates: start: 20130401, end: 20130416
  2. FINIBAX [Suspect]
     Indication: PNEUMONIA
     Route: 041
     Dates: start: 20130331, end: 20130331
  3. VANCOMYCIN HYDROCHLORIDE [Suspect]
     Indication: PNEUMONIA
     Route: 065
     Dates: start: 20130406, end: 20130411
  4. TAKEPRON [Concomitant]
     Indication: PROPHYLAXIS
     Route: 048
     Dates: start: 20130405, end: 20130416
  5. GASMOTIN [Concomitant]
     Indication: PROPHYLAXIS
     Route: 048
     Dates: start: 20130405, end: 20130416
  6. PRECEDEX [Concomitant]
     Route: 065
     Dates: start: 20130405, end: 20130408
  7. DORMICUM [Concomitant]
     Route: 065
     Dates: start: 20130402, end: 20130404
  8. ELASPOL [Concomitant]
     Route: 065
     Dates: start: 20130401, end: 20130409

REACTIONS (1)
  - Hepatic function abnormal [Unknown]
